FAERS Safety Report 4263864-0 (Version None)
Quarter: 2004Q1

REPORT INFORMATION
  Report Type: 
  Country: None (occurrence: None)
  Receive Date: 20040106
  Receipt Date: 20031229
  Transmission Date: 20041129
  Serious: Yes (Hospitalization, Other)
  Sender: FDA-Public Use
  Company Number: PHBS2003CH14515

PATIENT
  Age: 76 Year
  Sex: Male

DRUGS (6)
  1. LIORESAL [Suspect]
     Indication: HICCUPS
     Dosage: 20 MG/DAY
     Route: 048
     Dates: start: 20031127, end: 20031128
  2. LORAZEPAM [Suspect]
     Indication: INSOMNIA
     Route: 065
     Dates: start: 20031127, end: 20031127
  3. FLOXAPEN [Concomitant]
     Indication: STAPHYLOCOCCAL SEPSIS
     Dosage: 6 G
     Route: 041
  4. INSULIN [Concomitant]
     Indication: DIABETES MELLITUS
     Route: 065
  5. ACTRAPID [Concomitant]
     Indication: DIABETES MELLITUS
     Route: 065
  6. BENERVA [Concomitant]
     Indication: PROPHYLAXIS
     Route: 065

REACTIONS (4)
  - COMA [None]
  - FALL [None]
  - SOMNOLENCE [None]
  - STUPOR [None]
